FAERS Safety Report 24040257 (Version 1)
Quarter: 2024Q3

REPORT INFORMATION
  Report Type: Spontaneous
  Country: US (occurrence: US)
  Receive Date: 20240702
  Receipt Date: 20240702
  Transmission Date: 20241017
  Serious: Yes (Life-Threatening, Hospitalization)
  Sender: ACCORD
  Company Number: US-MLMSERVICE-20240618-PI097298-00203-2

PATIENT
  Age: 68 Year
  Sex: Male

DRUGS (1)
  1. LISINOPRIL [Suspect]
     Active Substance: LISINOPRIL
     Indication: Hypertension
     Dosage: HE HAD BEEN USING LISINOPRIL FOR OVER 5 YEARS

REACTIONS (2)
  - Acute respiratory failure [Recovered/Resolved]
  - Angioedema [Recovered/Resolved]
